FAERS Safety Report 21479382 (Version 1)
Quarter: 2022Q4

REPORT INFORMATION
  Report Type: Spontaneous
  Country: IT (occurrence: IT)
  Receive Date: 20221019
  Receipt Date: 20221019
  Transmission Date: 20230113
  Serious: Yes (Hospitalization, Other)
  Sender: FDA-Public Use
  Company Number: IT-AMGEN-ITASP2022176978

PATIENT
  Age: 63 Year
  Sex: Male

DRUGS (7)
  1. VECTIBIX [Suspect]
     Active Substance: PANITUMUMAB
     Indication: Adenocarcinoma of colon
     Dosage: 400 MG IN 100ML DI NACL 0.9%
     Route: 040
     Dates: start: 20220926
  2. METHYLPREDNISOLONE [Concomitant]
     Active Substance: METHYLPREDNISOLONE
     Indication: Prophylaxis
     Dosage: 125 MG IN 100 ML DI NACL 0.9%
     Route: 040
     Dates: start: 20220926
  3. FLUOROURACIL [Concomitant]
     Active Substance: FLUOROURACIL
     Indication: Adenocarcinoma of colon
     Dosage: 3900 MG IN GLUCOSATA IN ELASTOMERO 44 ORE
     Route: 040
     Dates: start: 20220926
  4. LEVOLEUCOVORIN CALCIUM [Concomitant]
     Active Substance: LEVOLEUCOVORIN CALCIUM
     Indication: Prophylaxis
     Dosage: 175 MG IN 100ML DI NACL 0.9%
     Route: 040
     Dates: start: 20220926
  5. ATROPINA SOLFATO [Concomitant]
     Indication: Allergy prophylaxis
     Dosage: 0.25 MG
     Route: 058
     Dates: start: 20220926
  6. IRINOTECAN [Concomitant]
     Active Substance: IRINOTECAN
     Indication: Adenocarcinoma of colon
     Dosage: 270 MG IN 500 ML DI NACL 0.9%
     Route: 040
     Dates: start: 20220926
  7. ONDANSETRON [Concomitant]
     Active Substance: ONDANSETRON
     Indication: Nausea
     Dosage: 8 MG IN 100 ML DI NACL 0.9%
     Route: 040
     Dates: start: 20220926

REACTIONS (2)
  - Skin lesion [Recovering/Resolving]
  - Angioedema [Recovering/Resolving]

NARRATIVE: CASE EVENT DATE: 20221005
